FAERS Safety Report 23997408 (Version 1)
Quarter: 2024Q2

REPORT INFORMATION
  Report Type: Spontaneous
  Country: US (occurrence: US)
  Receive Date: 20240621
  Receipt Date: 20240621
  Transmission Date: 20240716
  Serious: No
  Sender: FDA-Public Use
  Company Number: US-BRAEBURN-US-BRA-24-000262

PATIENT
  Sex: Female

DRUGS (2)
  1. BRIXADI [Suspect]
     Active Substance: BUPRENORPHINE
     Indication: Product used for unknown indication
     Dosage: UNK, MONTHLY
     Route: 065
  2. BRIXADI [Suspect]
     Active Substance: BUPRENORPHINE
     Dosage: UNK, WEEKLY
     Route: 065

REACTIONS (2)
  - Illness [Recovering/Resolving]
  - Withdrawal syndrome [Recovering/Resolving]
